FAERS Safety Report 8085091 (Version 5)
Quarter: 2012Q4

REPORT INFORMATION
  Report Type: 
  Country: US (occurrence: US)
  Receive Date: 20110810
  Receipt Date: 20120906
  Transmission Date: 20130627
  Serious: Yes (Hospitalization)
  Sender: FDA-Public Use
  Company Number: US-ASTRAZENECA-2011SE45717

PATIENT
  Age: 51 Year
  Sex: Female
  Weight: 107.5 kg

DRUGS (22)
  1. SEROQUEL [Suspect]
     Indication: BIPOLAR DISORDER
     Route: 048
  2. SEROQUEL [Suspect]
     Indication: DEPRESSION
     Route: 048
  3. SEROQUEL [Suspect]
     Indication: SLEEP DISORDER
     Route: 048
  4. SEROQUEL [Suspect]
     Indication: BORDERLINE PERSONALITY DISORDER
     Route: 048
  5. SEROQUEL [Suspect]
     Indication: BIPOLAR DISORDER
     Route: 048
  6. SEROQUEL [Suspect]
     Indication: DEPRESSION
     Route: 048
  7. SEROQUEL [Suspect]
     Indication: SLEEP DISORDER
     Route: 048
  8. SEROQUEL [Suspect]
     Indication: BORDERLINE PERSONALITY DISORDER
     Route: 048
  9. SEROQUEL [Suspect]
     Indication: BIPOLAR DISORDER
     Route: 048
  10. SEROQUEL [Suspect]
     Indication: DEPRESSION
     Route: 048
  11. SEROQUEL [Suspect]
     Indication: SLEEP DISORDER
     Route: 048
  12. SEROQUEL [Suspect]
     Indication: BORDERLINE PERSONALITY DISORDER
     Route: 048
  13. SEROQUEL [Suspect]
     Indication: BIPOLAR DISORDER
     Route: 048
  14. SEROQUEL [Suspect]
     Indication: DEPRESSION
     Route: 048
  15. SEROQUEL [Suspect]
     Indication: SLEEP DISORDER
     Route: 048
  16. SEROQUEL [Suspect]
     Indication: BORDERLINE PERSONALITY DISORDER
     Route: 048
  17. SEROQUEL [Suspect]
     Indication: BIPOLAR DISORDER
     Dosage: TWO A DAY
     Route: 048
  18. SEROQUEL [Suspect]
     Indication: DEPRESSION
     Dosage: TWO A DAY
     Route: 048
  19. SEROQUEL [Suspect]
     Indication: SLEEP DISORDER
     Dosage: TWO A DAY
     Route: 048
  20. SEROQUEL [Suspect]
     Indication: BORDERLINE PERSONALITY DISORDER
     Dosage: TWO A DAY
     Route: 048
  21. XANAX [Concomitant]
     Route: 048
  22. ANTIDEPRESSANT [Concomitant]

REACTIONS (16)
  - Left ventricular dysfunction [Unknown]
  - Impaired self-care [Unknown]
  - Myocardial infarction [Unknown]
  - Weight increased [Unknown]
  - Insomnia [Unknown]
  - Anxiety [Unknown]
  - Social avoidant behaviour [Unknown]
  - Middle insomnia [Unknown]
  - Malaise [Unknown]
  - Stress [Unknown]
  - Depression [Unknown]
  - Malaise [Unknown]
  - Fatigue [Unknown]
  - Intentional drug misuse [Unknown]
  - Drug dose omission [Unknown]
  - Drug ineffective for unapproved indication [Unknown]
